FAERS Safety Report 6596981-0 (Version None)
Quarter: 2010Q1

REPORT INFORMATION
  Report Type: 
  Country: None (occurrence: None)
  Receive Date: 20100223
  Receipt Date: 20100204
  Transmission Date: 20100710
  Serious: Yes (Hospitalization)
  Sender: FDA-Public Use
  Company Number: US-JNJFOC-20100102212

PATIENT
  Age: 66 Year
  Sex: Female
  Weight: 48.99 kg

DRUGS (4)
  1. TYLENOL [Suspect]
     Indication: INJECTION SITE PAIN
     Dosage: 650-1300MG AS NEEDED
     Route: 048
  2. TYLENOL [Suspect]
     Indication: ORAL PAIN
     Dosage: 650-1300MG AS NEEDED
     Route: 048
  3. SYNTHROID [Concomitant]
     Indication: HYPOTHYROIDISM
  4. TOPROL-XL [Concomitant]
     Indication: HYPERTENSION

REACTIONS (5)
  - ABDOMINAL PAIN UPPER [None]
  - DIARRHOEA [None]
  - NAUSEA [None]
  - PRODUCT QUALITY ISSUE [None]
  - WEIGHT DECREASED [None]
